FAERS Safety Report 10070588 (Version 5)
Quarter: 2014Q2

REPORT INFORMATION
  Report Type: Spontaneous
  Country: US (occurrence: US)
  Receive Date: 20140410
  Receipt Date: 20140611
  Transmission Date: 20141212
  Serious: Yes (Hospitalization, Other)
  Sender: FDA-Public Use
  Company Number: US-JNJFOC-20140315502

PATIENT
  Age: 54 Year
  Sex: Male

DRUGS (7)
  1. NUCYNTA ER [Suspect]
     Indication: PAIN
     Route: 048
     Dates: start: 20131018, end: 20131112
  2. ROBAXIN [Suspect]
     Indication: MUSCLE SPASMS
     Route: 065
     Dates: start: 20131018, end: 20131112
  3. KLOR [Concomitant]
     Indication: BLOOD POTASSIUM DECREASED
     Route: 065
  4. COUMADIN [Concomitant]
     Indication: THROMBOSIS PROPHYLAXIS
     Route: 065
  5. FAMOTIDINE [Concomitant]
     Indication: GASTROOESOPHAGEAL REFLUX DISEASE
     Route: 065
  6. LASIX [Concomitant]
     Indication: OEDEMA
     Dosage: 1: AM, 1-PM
     Route: 065
  7. GABAPENTIN [Concomitant]
     Indication: NEUROPATHY PERIPHERAL
     Route: 065

REACTIONS (8)
  - Syncope [Recovered/Resolved]
  - Head injury [Unknown]
  - Fall [Unknown]
  - Loss of consciousness [Unknown]
  - Chest pain [Recovered/Resolved]
  - Joint injury [Unknown]
  - Headache [Recovered/Resolved]
  - Tinnitus [Recovered/Resolved]
